FAERS Safety Report 20094037 (Version 3)
Quarter: 2022Q1

REPORT INFORMATION
  Report Type: Report from Study
  Country: ZA (occurrence: ZA)
  Receive Date: 20211121
  Receipt Date: 20220316
  Transmission Date: 20220423
  Serious: Yes (Other)
  Sender: FDA-Public Use
  Company Number: ZA-ABBVIE-21K-143-4168343-00

PATIENT
  Sex: Female

DRUGS (2)
  1. HUMIRA [Suspect]
     Active Substance: ADALIMUMAB
     Indication: Hidradenitis
     Route: 058
     Dates: start: 202006, end: 202105
  2. HUMIRA [Suspect]
     Active Substance: ADALIMUMAB
     Route: 058
     Dates: start: 20220130

REACTIONS (9)
  - Cholecystectomy [Recovered/Resolved]
  - Scarlet fever [Recovered/Resolved]
  - Surgical failure [Unknown]
  - Malaise [Unknown]
  - Endodontic procedure [Unknown]
  - Abscess oral [Recovered/Resolved]
  - Swelling face [Unknown]
  - Upper respiratory tract infection [Recovered/Resolved]
  - COVID-19 [Unknown]

NARRATIVE: CASE EVENT DATE: 20210101
